FAERS Safety Report 9400463 (Version 1)
Quarter: 2013Q3

REPORT INFORMATION
  Report Type: Spontaneous
  Country: US (occurrence: None)
  Receive Date: 20130712
  Receipt Date: 20130712
  Transmission Date: 20140515
  Serious: No
  Sender: FDA-Public Use
  Company Number: None

PATIENT
  Age: 68 None
  Sex: Female
  Weight: 106.6 kg

DRUGS (20)
  1. DEXILANT [Suspect]
     Indication: GASTROOESOPHAGEAL REFLUX DISEASE
     Route: 048
     Dates: start: 20130607, end: 20130622
  2. INSULIN [Concomitant]
  3. ATPRVASTATOM [Concomitant]
  4. FUROSEMIDE [Concomitant]
  5. OMEPRAZOLE [Concomitant]
  6. PLAVIX [Concomitant]
  7. FLUTICASONE [Concomitant]
  8. NITROGLYCERINE [Concomitant]
  9. METOPROLOL [Concomitant]
  10. ISOSORBIDE [Concomitant]
  11. TRAZODONE [Concomitant]
  12. AUGMENTIN [Concomitant]
  13. ASPIRIN [Concomitant]
  14. CALCIUM [Concomitant]
  15. COLACE [Concomitant]
  16. FISH OIL [Concomitant]
  17. IRON [Concomitant]
  18. RENAL VIT [Concomitant]
  19. VIT C [Concomitant]
  20. TYLENOL MECLIZINE [Concomitant]

REACTIONS (2)
  - Urticaria [None]
  - Diarrhoea [None]
